FAERS Safety Report 6096073-3 (Version None)
Quarter: 2009Q1

REPORT INFORMATION
  Report Type: 
  Country: None (occurrence: None)
  Receive Date: 20090227
  Receipt Date: 20080826
  Transmission Date: 20090719
  Serious: No
  Sender: FDA-Public Use
  Company Number: A0744477A

PATIENT
  Age: 32 Year
  Sex: Male

DRUGS (3)
  1. LAMICTAL [Suspect]
     Indication: BIPOLAR DISORDER
     Route: 048
     Dates: start: 20060701
  2. CONCERTA [Concomitant]
  3. ANTIHISTAMINES [Concomitant]

REACTIONS (1)
  - RASH ERYTHEMATOUS [None]
